FAERS Safety Report 21767782 (Version 1)
Quarter: 2022Q4

REPORT INFORMATION
  Report Type: Spontaneous
  Country: BA (occurrence: BA)
  Receive Date: 20221222
  Receipt Date: 20221222
  Transmission Date: 20230112
  Serious: Yes (Death, Other)
  Sender: FDA-Public Use
  Company Number: BA-PFIZER INC-PV202200127081

PATIENT
  Age: 72 Year
  Sex: Female

DRUGS (1)
  1. TIGECYCLINE [Suspect]
     Active Substance: TIGECYCLINE
     Indication: Sepsis
     Dosage: UNK

REACTIONS (3)
  - Cardiac failure [Fatal]
  - Cardiac arrest [Unknown]
  - COVID-19 [Unknown]
